FAERS Safety Report 11329048 (Version 13)
Quarter: 2016Q2

REPORT INFORMATION
  Report Type: Report from Study
  Country: US (occurrence: US)
  Receive Date: 20150802
  Receipt Date: 20160625
  Transmission Date: 20160815
  Serious: No
  Sender: FDA-Public Use
  Company Number: PHEH2014US018168

PATIENT
  Age: 6 Year
  Sex: Male

DRUGS (22)
  1. AFINITOR [Suspect]
     Active Substance: EVEROLIMUS
     Dosage: UNK
     Route: 048
     Dates: start: 20151214
  2. ATIVAN [Concomitant]
     Active Substance: LORAZEPAM
     Indication: PRODUCT USED FOR UNKNOWN INDICATION
     Route: 065
  3. AFINITOR [Suspect]
     Active Substance: EVEROLIMUS
     Indication: BRAIN NEOPLASM BENIGN
     Dosage: 5 MG, QD
     Route: 048
     Dates: start: 20140906, end: 20140916
  4. AFINITOR [Suspect]
     Active Substance: EVEROLIMUS
     Dosage: 5 MG, QD
     Route: 048
     Dates: start: 20141121
  5. SINGULAIR [Concomitant]
     Active Substance: MONTELUKAST SODIUM
     Indication: PRODUCT USED FOR UNKNOWN INDICATION
     Route: 065
  6. ZOLOFT [Concomitant]
     Active Substance: SERTRALINE HYDROCHLORIDE
     Indication: PRODUCT USED FOR UNKNOWN INDICATION
     Route: 065
  7. AFINITOR [Suspect]
     Active Substance: EVEROLIMUS
     Dosage: 5 MG, QD
     Route: 048
     Dates: end: 20160512
  8. DIASTAT                            /01384601/ [Concomitant]
     Indication: PRODUCT USED FOR UNKNOWN INDICATION
     Route: 030
  9. TRIAMCINOLONE ACETONIDE. [Concomitant]
     Active Substance: TRIAMCINOLONE ACETONIDE
     Indication: PRODUCT USED FOR UNKNOWN INDICATION
     Route: 065
  10. AFINITOR [Suspect]
     Active Substance: EVEROLIMUS
     Dosage: DOSE DECREASED BY 2.5 MG
     Route: 048
  11. CLONIDINE. [Concomitant]
     Active Substance: CLONIDINE
     Indication: PRODUCT USED FOR UNKNOWN INDICATION
     Route: 065
  12. PROZAC [Concomitant]
     Active Substance: FLUOXETINE HYDROCHLORIDE
     Indication: PRODUCT USED FOR UNKNOWN INDICATION
     Route: 065
  13. TRILEPTAL [Concomitant]
     Active Substance: OXCARBAZEPINE
     Indication: PRODUCT USED FOR UNKNOWN INDICATION
     Route: 065
  14. FOLIC ACID. [Concomitant]
     Active Substance: FOLIC ACID
     Indication: PRODUCT USED FOR UNKNOWN INDICATION
     Route: 065
  15. AFINITOR [Suspect]
     Active Substance: EVEROLIMUS
     Dosage: 10 MG, QD
     Route: 048
  16. AFINITOR [Suspect]
     Active Substance: EVEROLIMUS
     Dosage: 5 MG, UNK
     Route: 065
     Dates: start: 20160104, end: 20160119
  17. AFINITOR [Suspect]
     Active Substance: EVEROLIMUS
     Dosage: 7.5 MG, QD
     Route: 048
     Dates: start: 20150918, end: 20151204
  18. AFINITOR [Suspect]
     Active Substance: EVEROLIMUS
     Dosage: UNK
     Route: 048
     Dates: start: 20140923
  19. AFINITOR [Suspect]
     Active Substance: EVEROLIMUS
     Dosage: 7.5 MG, QD
     Route: 048
     Dates: end: 20150209
  20. AFINITOR [Suspect]
     Active Substance: EVEROLIMUS
     Dosage: 7.5 MG, QD
     Route: 048
     Dates: end: 20150904
  21. AFINITOR [Suspect]
     Active Substance: EVEROLIMUS
     Dosage: 5 MG, QD
     Route: 048
     Dates: start: 20160401, end: 20160413
  22. ZYRTEC [Concomitant]
     Active Substance: CETIRIZINE HYDROCHLORIDE
     Indication: PRODUCT USED FOR UNKNOWN INDICATION
     Route: 065

REACTIONS (34)
  - Restlessness [Unknown]
  - Drug level decreased [Unknown]
  - Sinus congestion [Not Recovered/Not Resolved]
  - Blood triglycerides increased [Unknown]
  - Nasopharyngitis [Not Recovered/Not Resolved]
  - Headache [Recovered/Resolved]
  - Malaise [Unknown]
  - Rhinorrhoea [Unknown]
  - Strabismus [Unknown]
  - Ear congestion [Not Recovered/Not Resolved]
  - White blood cell count decreased [Unknown]
  - Sleep disorder [Unknown]
  - Blood sodium decreased [Unknown]
  - Ear infection [Recovering/Resolving]
  - Pyrexia [Unknown]
  - Eating disorder [Recovering/Resolving]
  - Blood cholesterol increased [Unknown]
  - Somnolence [Recovering/Resolving]
  - Oral mucosal blistering [Unknown]
  - Middle ear effusion [Unknown]
  - Cough [Not Recovered/Not Resolved]
  - Drug level increased [Unknown]
  - Hypersomnia [Unknown]
  - Terminal insomnia [Unknown]
  - Mouth ulceration [Not Recovered/Not Resolved]
  - Wrong technique in product usage process [Unknown]
  - Stomatitis [Recovering/Resolving]
  - Oral discomfort [Unknown]
  - Poor quality sleep [Unknown]
  - Anxiety [Unknown]
  - Alopecia [Unknown]
  - Abnormal behaviour [Unknown]
  - Oral pain [Unknown]
  - Diarrhoea [Unknown]

NARRATIVE: CASE EVENT DATE: 20140906
